FAERS Safety Report 18036316 (Version 1)
Quarter: 2020Q3

REPORT INFORMATION
  Report Type: Spontaneous
  Country: JP (occurrence: JP)
  Receive Date: 20200717
  Receipt Date: 20200717
  Transmission Date: 20201103
  Serious: Yes (Death, Other)
  Sender: FDA-Public Use
  Company Number: JP-ELI_LILLY_AND_COMPANY-JP202007006607

PATIENT
  Age: 40 Year
  Sex: Male
  Weight: 64.8 kg

DRUGS (16)
  1. VANCOMYCIN [Suspect]
     Active Substance: VANCOMYCIN
     Indication: NEUTROPENIC SEPSIS
     Dosage: 1.5 G, DAILY
     Route: 042
     Dates: start: 20131027, end: 20131106
  2. TAKEPRON [Suspect]
     Active Substance: LANSOPRAZOLE
     Indication: PROPHYLAXIS AGAINST GASTROINTESTINAL ULCER
     Dosage: 30 MG
     Route: 041
     Dates: start: 20131027, end: 20131108
  3. FENTANYL CITRATE. [Concomitant]
     Active Substance: FENTANYL CITRATE
  4. INOTUZUMAB OZOGAMICIN [Suspect]
     Active Substance: INOTUZUMAB OZOGAMICIN
     Indication: ACUTE LYMPHOCYTIC LEUKAEMIA
     Dosage: 1.42 MG, CYCLICAL
     Route: 042
     Dates: start: 20131022, end: 20131028
  5. NICARDIPINE HYDROCHLORIDE. [Suspect]
     Active Substance: NICARDIPINE HYDROCHLORIDE
     Indication: HYPERTENSION
     Dosage: 30 MG, PRN
     Route: 041
     Dates: start: 20131103
  6. CHLOR?TRIMETON [Suspect]
     Active Substance: CHLORPHENIRAMINE MALEATE
     Indication: ALLERGY PROPHYLAXIS
     Dosage: 10 MG, DAILY
     Route: 065
     Dates: start: 20131027, end: 20131107
  7. LACTEC [Concomitant]
     Active Substance: CALCIUM CHLORIDE ANHYDROUS\POTASSIUM CHLORIDE\SODIUM CHLORIDE\SODIUM LACTATE
  8. MEROPEN [MEROPENEM] [Suspect]
     Active Substance: MEROPENEM
     Indication: NEUTROPENIC SEPSIS
     Dosage: 1 G, DAILY
     Route: 041
     Dates: start: 20131027, end: 20131108
  9. HYDROCORTONE [HYDROCORTISONE] [Suspect]
     Active Substance: HYDROCORTISONE
     Indication: PYREXIA
     Dosage: 50 MG
     Route: 041
     Dates: start: 20131027, end: 20131101
  10. HYDROCORTONE [HYDROCORTISONE] [Suspect]
     Active Substance: HYDROCORTISONE
     Dosage: 100 MG
     Route: 041
     Dates: start: 20131102, end: 20131104
  11. HYDROCORTONE [HYDROCORTISONE] [Suspect]
     Active Substance: HYDROCORTISONE
     Dosage: 50 MG
     Route: 041
     Dates: start: 20131105, end: 20131106
  12. GLYCEOL [Suspect]
     Active Substance: GLYCERIN
     Indication: BRAIN OEDEMA
     Dosage: 200 ML, DAILY
     Route: 041
     Dates: start: 20131030
  13. GRAN [FILGRASTIM] [Suspect]
     Active Substance: FILGRASTIM
     Indication: NEUTROPENIA
     Dosage: 75 UG, DAILY
     Route: 058
     Dates: start: 20131025, end: 20131108
  14. HUMULIN R [Suspect]
     Active Substance: INSULIN HUMAN
     Indication: HYPERGLYCAEMIA
     Dosage: 50 INTERNATIONAL UNIT, PRN
     Route: 041
     Dates: start: 20131102
  15. PHYSIO 70 [Concomitant]
  16. BFLUID [Concomitant]
     Active Substance: AMINO ACIDS\DEXTROSE\ELECTROLYTES NOS\VITAMINS

REACTIONS (2)
  - Hepatic vein occlusion [Not Recovered/Not Resolved]
  - Neutropenic sepsis [Fatal]

NARRATIVE: CASE EVENT DATE: 20131105
